FAERS Safety Report 23355205 (Version 1)
Quarter: 2024Q1

REPORT INFORMATION
  Report Type: Spontaneous
  Country: US (occurrence: US)
  Receive Date: 20240102
  Receipt Date: 20240102
  Transmission Date: 20240409
  Serious: Yes (Other)
  Sender: FDA-Public Use
  Company Number: US-ROCHE-3477830

PATIENT
  Sex: Female

DRUGS (3)
  1. CLONAZEPAM [Suspect]
     Active Substance: CLONAZEPAM
     Indication: Anxiety
     Route: 048
  2. KADCYLA [Suspect]
     Active Substance: ADO-TRASTUZUMAB EMTANSINE
     Indication: Breast cancer female
     Route: 042
  3. Venlaflaxine ER [Concomitant]
     Route: 048

REACTIONS (12)
  - Major depression [Unknown]
  - Nephrolithiasis [Unknown]
  - Toxic nodular goitre [Unknown]
  - Gait disturbance [Unknown]
  - Cardiac murmur [Unknown]
  - Gastrooesophageal reflux disease [Unknown]
  - Sinus tachycardia [Unknown]
  - Depression [Unknown]
  - Atrial fibrillation [Unknown]
  - Movement disorder [Unknown]
  - Rash papular [Unknown]
  - Depression [Unknown]

NARRATIVE: CASE EVENT DATE: 20140101
